FAERS Safety Report 24563099 (Version 2)
Quarter: 2024Q4

REPORT INFORMATION
  Report Type: Report from Study
  Country: US (occurrence: US)
  Receive Date: 20241030
  Receipt Date: 20241112
  Transmission Date: 20250114
  Serious: Yes (Other)
  Sender: ACADIA PHARMACEUTICALS
  Company Number: US-ACADIA PHARMACEUTICALS INC.-ACA-2024-TRF-006767

PATIENT
  Age: 19 Year
  Sex: Female

DRUGS (6)
  1. DAYBUE [Suspect]
     Active Substance: TROFINETIDE
     Dosage: UNK
     Route: 065
     Dates: start: 20231130, end: 20231212
  2. CLONIDINE [Concomitant]
     Active Substance: CLONIDINE
  3. BACLOFEN [Concomitant]
     Active Substance: BACLOFEN
  4. MEDROXYPROGESTERONE ACETATE [Concomitant]
     Active Substance: MEDROXYPROGESTERONE ACETATE
  5. GABAPENTIN [Concomitant]
     Active Substance: GABAPENTIN
  6. NITROFURANTOIN [Concomitant]
     Active Substance: NITROFURANTOIN

REACTIONS (5)
  - Arrhythmia [Recovered/Resolved]
  - Discomfort [Unknown]
  - Dehydration [Unknown]
  - Mood altered [Recovered/Resolved]
  - Diarrhoea [Recovered/Resolved]

NARRATIVE: CASE EVENT DATE: 20231202
